FAERS Safety Report 7112729-5 (Version None)
Quarter: 2010Q4

REPORT INFORMATION
  Report Type: 
  Country: None (occurrence: None)
  Receive Date: 20101119
  Receipt Date: 20101109
  Transmission Date: 20110411
  Serious: Yes (Other)
  Sender: FDA-Public Use
  Company Number: US-JNJFOC-20100706536

PATIENT
  Sex: Female
  Weight: 67.59 kg

DRUGS (3)
  1. LEVAQUIN [Suspect]
     Indication: SINUSITIS
     Route: 048
  2. LEVAQUIN [Suspect]
     Route: 048
  3. LEVAQUIN [Suspect]
     Indication: ILL-DEFINED DISORDER
     Route: 042

REACTIONS (4)
  - ARTHROPATHY [None]
  - CARTILAGE INJURY [None]
  - MENISCUS LESION [None]
  - TENDONITIS [None]
